FAERS Safety Report 6779877-0 (Version None)
Quarter: 2010Q2

REPORT INFORMATION
  Report Type: 
  Country: None (occurrence: None)
  Receive Date: 20100618
  Receipt Date: 20100608
  Transmission Date: 20101027
  Serious: Yes (Other)
  Sender: FDA-Public Use
  Company Number: PHHY2010US37673

PATIENT

DRUGS (1)
  1. RECLAST [Suspect]
     Route: 042

REACTIONS (2)
  - ASCITES [None]
  - PLEURAL EFFUSION [None]
